FAERS Safety Report 6196529-9 (Version None)
Quarter: 2009Q2

REPORT INFORMATION
  Report Type: 
  Country: None (occurrence: None)
  Receive Date: 20090520
  Receipt Date: 20090211
  Transmission Date: 20091009
  Serious: Yes (Hospitalization, Other)
  Sender: FDA-Public Use
  Company Number: US-ABBOTT-09P-163-0503005-00

PATIENT
  Sex: Female
  Weight: 77.18 kg

DRUGS (5)
  1. ZEMPLAR [Suspect]
     Indication: HYPERPARATHYROIDISM
     Dates: start: 20080101, end: 20090101
  2. DEMADEX [Concomitant]
     Indication: FLUID RETENTION
  3. ZAROXOLYN [Concomitant]
     Indication: FLUID RETENTION
  4. TOPROL-XL [Concomitant]
     Indication: HYPERTENSION
  5. TOPROL-XL [Concomitant]
     Indication: HEART RATE INCREASED

REACTIONS (3)
  - FALL [None]
  - SKELETAL INJURY [None]
  - THROMBOSIS [None]
